FAERS Safety Report 8355658-1 (Version None)
Quarter: 2012Q2

REPORT INFORMATION
  Report Type: 
  Country: None (occurrence: None)
  Receive Date: 20120514
  Receipt Date: 20120503
  Transmission Date: 20120825
  Serious: Yes (Hospitalization)
  Sender: FDA-Public Use
  Company Number: AR-BIOGENIDEC-2012BI015091

PATIENT
  Sex: Female

DRUGS (4)
  1. CLONAZEPAM [Concomitant]
  2. CEPHALEXIN [Concomitant]
  3. TRAMADOL HYDROCHLORIDE [Concomitant]
     Indication: PAIN
  4. AVONEX [Suspect]
     Indication: MULTIPLE SCLEROSIS
     Route: 030
     Dates: start: 20110501

REACTIONS (2)
  - LYMPHATIC SYSTEM NEOPLASM [None]
  - DENTAL CARE [None]
